FAERS Safety Report 19373634 (Version 1)
Quarter: 2021Q2

REPORT INFORMATION
  Report Type: Spontaneous
  Country: US (occurrence: US)
  Receive Date: 20210603
  Receipt Date: 20210603
  Transmission Date: 20210717
  Serious: No
  Sender: FDA-Public Use
  Company Number: US-009507513-2105USA004924

PATIENT
  Age: 52 Year
  Sex: Female

DRUGS (7)
  1. BENAZEPRIL [Concomitant]
     Active Substance: BENAZEPRIL HYDROCHLORIDE
  2. WELLBUTRIN [Concomitant]
     Active Substance: BUPROPION HYDROCHLORIDE
  3. ALBUTEROL SULFATE. [Suspect]
     Active Substance: ALBUTEROL SULFATE
     Indication: RESPIRATION ABNORMAL
  4. ALBUTEROL SULFATE. [Suspect]
     Active Substance: ALBUTEROL SULFATE
     Indication: PULMONARY MASS
     Dosage: TWO PUFFS BY MOUTH EVERY 4 TO 6 HOURS AS NEEDED
     Route: 055
     Dates: start: 20210506
  5. POTASSIUM [Concomitant]
     Active Substance: POTASSIUM
  6. DIAZEPAM. [Concomitant]
     Active Substance: DIAZEPAM
  7. ZINC. [Concomitant]
     Active Substance: ZINC

REACTIONS (7)
  - Manufacturing issue [Unknown]
  - Product dose omission issue [Unknown]
  - Device leakage [Unknown]
  - Device malfunction [Unknown]
  - Device use issue [Unknown]
  - Poor quality device used [Unknown]
  - Product delivery mechanism issue [Unknown]

NARRATIVE: CASE EVENT DATE: 20210506
